FAERS Safety Report 16648073 (Version 1)
Quarter: 2019Q3

REPORT INFORMATION
  Report Type: Spontaneous
  Country: US (occurrence: US)
  Receive Date: 20190730
  Receipt Date: 20190730
  Transmission Date: 20191004
  Serious: No
  Sender: FDA-Public Use
  Company Number: US-JNJFOC-20190738482

PATIENT
  Sex: Male
  Weight: 106 kg

DRUGS (1)
  1. INVEGA SUSTENNA [Suspect]
     Active Substance: PALIPERIDONE PALMITATE
     Indication: SCHIZOPHRENIA
     Dosage: THE CONSUMER^S LAST INJECTION ON 24/JUL/2019
     Route: 030
     Dates: start: 2013

REACTIONS (2)
  - Creatinine renal clearance abnormal [Unknown]
  - Creatinine renal clearance decreased [Unknown]
